FAERS Safety Report 9473536 (Version 2)
Quarter: 2013Q3

REPORT INFORMATION
  Report Type: Spontaneous
  Country: US (occurrence: US)
  Receive Date: 20130823
  Receipt Date: 20130823
  Transmission Date: 20140515
  Serious: No
  Sender: FDA-Public Use
  Company Number: US-GALDERMA-US13000922

PATIENT
  Age: 47 Year
  Sex: Female
  Weight: 59 kg

DRUGS (3)
  1. METROGEL (METRONIDAZOLE) GEL, 1% [Suspect]
     Indication: ROSACEA
     Dosage: 1%
     Route: 061
     Dates: start: 20130317, end: 20130320
  2. CETAPHIL GENTLE SKIN CLEANSER [Concomitant]
     Indication: THERAPEUTIC SKIN CARE TOPICAL
     Route: 061
  3. CETAPHIL MOISTURIZING LOTION [Concomitant]
     Indication: DRY SKIN PROPHYLAXIS
     Route: 061

REACTIONS (12)
  - Pollakiuria [Recovered/Resolved]
  - Dry throat [Recovered/Resolved]
  - Nasal dryness [Recovered/Resolved]
  - Headache [Recovered/Resolved]
  - Nasal congestion [Recovered/Resolved]
  - Rhinorrhoea [Recovered/Resolved]
  - Feeling abnormal [Recovered/Resolved]
  - Poor quality sleep [Recovered/Resolved]
  - Thirst [Recovered/Resolved]
  - Pain of skin [Recovered/Resolved]
  - Condition aggravated [Not Recovered/Not Resolved]
  - Skin burning sensation [Recovered/Resolved]
